FAERS Safety Report 9608562 (Version 1)
Quarter: 2013Q4

REPORT INFORMATION
  Report Type: Spontaneous
  Country: FR (occurrence: FR)
  Receive Date: 20131009
  Receipt Date: 20131009
  Transmission Date: 20140711
  Serious: Yes (Hospitalization)
  Sender: FDA-Public Use
  Company Number: FR-PFIZER INC-2013281703

PATIENT
  Age: 68 Year
  Sex: Male

DRUGS (1)
  1. XALATAN [Suspect]
     Indication: OCULAR HYPERTENSION
     Dosage: 2 GTT, DAILY
     Route: 031
     Dates: start: 2011, end: 201212

REACTIONS (2)
  - Hypertension [Recovered/Resolved]
  - Extrasystoles [Recovering/Resolving]
